FAERS Safety Report 17446738 (Version 1)
Quarter: 2020Q1

REPORT INFORMATION
  Report Type: Report from Study
  Country: IN (occurrence: IN)
  Receive Date: 20200221
  Receipt Date: 20200221
  Transmission Date: 20200409
  Serious: Yes (Other)
  Sender: FDA-Public Use
  Company Number: NVSC2020IN043183

PATIENT
  Age: 37 Year
  Sex: Male
  Weight: 77.6 kg

DRUGS (1)
  1. GALVUS MET [Suspect]
     Active Substance: METFORMIN HYDROCHLORIDE\VILDAGLIPTIN
     Indication: DIABETES MELLITUS
     Dosage: 1 DF, BID (50MG VILDAGLIPTIN AND 500MG METFORMIN)
     Route: 048
     Dates: start: 2015

REACTIONS (5)
  - Obesity [Unknown]
  - Hyperglycaemia [Unknown]
  - Asthenia [Unknown]
  - Hypothyroidism [Unknown]
  - Blood glucose increased [Unknown]

NARRATIVE: CASE EVENT DATE: 2015
